FAERS Safety Report 10387751 (Version 1)
Quarter: 2014Q1

REPORT INFORMATION
  Report Type: Spontaneous
  Country: US (occurrence: None)
  Receive Date: 20140306
  Receipt Date: 20140306
  Transmission Date: 20141002
  Serious: Yes (Other)
  Sender: FDA-Public Use
  Company Number: 163-21880-13081910

PATIENT
  Age: 65 Year
  Sex: Female

DRUGS (1)
  1. REVLIMID (LENALIDOMIDE) (25 MILLIGRAM, CAPSULES) [Suspect]
     Dosage: 14 IN 21 D?
     Route: 048
     Dates: start: 20130709

REACTIONS (6)
  - Ageusia [None]
  - Diarrhoea [None]
  - Neuropathy peripheral [None]
  - Fluid retention [None]
  - Joint swelling [None]
  - Pain [None]
